FAERS Safety Report 18306652 (Version 1)
Quarter: 2020Q3

REPORT INFORMATION
  Report Type: Spontaneous
  Country: CO (occurrence: CO)
  Receive Date: 20200924
  Receipt Date: 20200924
  Transmission Date: 20201103
  Serious: Yes (Death, Other)
  Sender: FDA-Public Use
  Company Number: CO-BAYER-2020-162128

PATIENT
  Age: 42 Year
  Sex: Female

DRUGS (1)
  1. IOPROMIDE. [Suspect]
     Active Substance: IOPROMIDE

REACTIONS (5)
  - Generalised tonic-clonic seizure [Fatal]
  - Cyanosis [Fatal]
  - Death [Fatal]
  - Vomiting [Fatal]
  - Salivary hypersecretion [Fatal]
